FAERS Safety Report 6695348-4 (Version None)
Quarter: 2010Q2

REPORT INFORMATION
  Report Type: 
  Country: None (occurrence: None)
  Receive Date: 20100423
  Receipt Date: 20100423
  Transmission Date: 20101027
  Serious: Yes (Other)
  Sender: FDA-Public Use
  Company Number: None

PATIENT
  Sex: Female
  Weight: 71.6683 kg

DRUGS (1)
  1. ZICAM COLD REMEDY 2X NASAL GEL MATRIXX INITIATIVES, INC [Suspect]
     Indication: UPPER AIRWAY OBSTRUCTION
     Dosage: 1 SPRAY Q NIGHT NASAL
     Route: 045
     Dates: start: 20100328, end: 20100329

REACTIONS (2)
  - ANOSMIA [None]
  - PAROSMIA [None]
